FAERS Safety Report 22324565 (Version 2)
Quarter: 2023Q2

REPORT INFORMATION
  Report Type: Spontaneous
  Country: DE (occurrence: DE)
  Receive Date: 20230516
  Receipt Date: 20230619
  Transmission Date: 20230722
  Serious: Yes (Death, Other)
  Sender: FDA-Public Use
  Company Number: DE-AMGEN-DEUSP2023081380

PATIENT
  Age: 40 Year
  Sex: Male

DRUGS (4)
  1. MVASI [Suspect]
     Active Substance: BEVACIZUMAB-AWWB
     Indication: Small cell lung cancer
     Dosage: UNK
     Route: 065
  2. ATEZOLIZUMAB [Concomitant]
     Active Substance: ATEZOLIZUMAB
     Indication: Small cell lung cancer
     Route: 065
  3. NIVOLUMAB [Concomitant]
     Active Substance: NIVOLUMAB
     Indication: Small cell lung cancer
     Route: 065
  4. PEMBROLIZUMAB [Concomitant]
     Active Substance: PEMBROLIZUMAB
     Indication: Small cell lung cancer
     Route: 065

REACTIONS (10)
  - Small cell lung cancer recurrent [Unknown]
  - Death [Fatal]
  - Pneumonitis [Unknown]
  - Respiratory disorder [Unknown]
  - Skin disorder [Unknown]
  - Blood disorder [Unknown]
  - Therapy partial responder [Unknown]
  - Gastrointestinal disorder [Unknown]
  - Erythema [Unknown]
  - Dysphagia [Unknown]
